FAERS Safety Report 20091476 (Version 1)
Quarter: 2021Q4

REPORT INFORMATION
  Report Type: Spontaneous
  Country: US (occurrence: None)
  Receive Date: 20211118
  Receipt Date: 20211118
  Transmission Date: 20220304
  Serious: No
  Sender: FDA-Public Use
  Company Number: None

PATIENT
  Age: 29 Year
  Sex: Male
  Weight: 131.09 kg

DRUGS (2)
  1. GAMUNEX-C [Suspect]
     Active Substance: HUMAN IMMUNOGLOBULIN G
  2. 50 mg lV Diphenhydramine [Concomitant]

REACTIONS (3)
  - Throat irritation [None]
  - Ear pruritus [None]
  - Infusion related reaction [None]

NARRATIVE: CASE EVENT DATE: 20211113
